FAERS Safety Report 17174353 (Version 2)
Quarter: 2020Q1

REPORT INFORMATION
  Report Type: Spontaneous
  Country: JP (occurrence: JP)
  Receive Date: 20191219
  Receipt Date: 20200103
  Transmission Date: 20200409
  Serious: Yes (Hospitalization)
  Sender: FDA-Public Use
  Company Number: JP-ROCHE-2497984

PATIENT
  Age: 72 Year
  Sex: Female

DRUGS (2)
  1. ATOVAQUONE. [Suspect]
     Active Substance: ATOVAQUONE
     Indication: PROPHYLAXIS
     Dosage: DOSAGE IS UNCERTAIN.
     Route: 065
     Dates: end: 20160406
  2. ACTEMRA [Suspect]
     Active Substance: TOCILIZUMAB
     Indication: STILL^S DISEASE
     Route: 058
     Dates: start: 20160215, end: 20160401

REACTIONS (4)
  - Intentional product use issue [Unknown]
  - Off label use [Unknown]
  - Hepatic function abnormal [Recovered/Resolved]
  - Still^s disease [Unknown]

NARRATIVE: CASE EVENT DATE: 20160401
